FAERS Safety Report 22237996 (Version 2)
Quarter: 2023Q2

REPORT INFORMATION
  Report Type: Spontaneous
  Country: US (occurrence: None)
  Receive Date: 20230421
  Receipt Date: 20230428
  Transmission Date: 20230722
  Serious: Yes (Other)
  Sender: FDA-Public Use
  Company Number: US-Hikma Pharmaceuticals USA Inc.-US-H14001-23-01163

PATIENT
  Sex: Female

DRUGS (1)
  1. PREDNISONE [Suspect]
     Active Substance: PREDNISONE
     Indication: Product used for unknown indication
     Dosage: UNKNOWN
     Route: 065

REACTIONS (18)
  - Weight increased [Unknown]
  - Myocardial infarction [Unknown]
  - Fatigue [Unknown]
  - Pain [Unknown]
  - Femur fracture [Unknown]
  - Peripheral swelling [Unknown]
  - Pelvic fracture [Unknown]
  - Obsessive-compulsive disorder [Unknown]
  - Fall [Unknown]
  - Immunodeficiency [Unknown]
  - Arthralgia [Unknown]
  - Osteoporosis [Unknown]
  - Depression [Unknown]
  - Tendon rupture [Unknown]
  - Brain fog [Unknown]
  - Haemorrhage [Unknown]
  - Asthenia [Unknown]
  - Tachycardia [Unknown]

NARRATIVE: CASE EVENT DATE: 20200101
